FAERS Safety Report 21956144 (Version 1)
Quarter: 2023Q1

REPORT INFORMATION
  Report Type: Spontaneous
  Country: IN (occurrence: IN)
  Receive Date: 20230206
  Receipt Date: 20230206
  Transmission Date: 20230418
  Serious: Yes (Hospitalization, Other)
  Sender: FDA-Public Use
  Company Number: None

PATIENT
  Sex: Female

DRUGS (2)
  1. PHENYTOIN [Suspect]
     Active Substance: PHENYTOIN
     Indication: Seizure
     Route: 065
  2. CHOLECALCIFEROL [Concomitant]
     Active Substance: CHOLECALCIFEROL
     Indication: Product used for unknown indication
     Dosage: 60 000 U/WEEK
     Route: 048

REACTIONS (10)
  - Knee deformity [Unknown]
  - Dwarfism [Unknown]
  - Dry skin [Unknown]
  - Tendonitis [Unknown]
  - Hypothalamo-pituitary disorder [Unknown]
  - Central hypothyroidism [Recovered/Resolved]
  - Gingival hypertrophy [Unknown]
  - Rickets [Unknown]
  - Cerebellar atrophy [Unknown]
  - Toxicity to various agents [Unknown]
